FAERS Safety Report 5758020-0 (Version None)
Quarter: 2008Q2

REPORT INFORMATION
  Report Type: 
  Country: None (occurrence: None)
  Receive Date: 20080602
  Receipt Date: 20080602
  Transmission Date: 20081010
  Serious: Yes (Life-Threatening, Hospitalization, Disabling)
  Sender: FDA-Public Use
  Company Number: None

PATIENT
  Age: 56 Year
  Sex: Male
  Weight: 146 kg

DRUGS (4)
  1. BENICAR [Suspect]
     Indication: DIABETES MELLITUS
     Dosage: 40 MG QDAY PO
     Route: 048
  2. BENICAR [Suspect]
     Indication: HYPERTENSION
     Dosage: 40 MG QDAY PO
     Route: 048
  3. LASIX [Suspect]
     Indication: CARDIAC FAILURE
     Dosage: 80 MG TID PO
     Route: 048
  4. LASIX [Suspect]
     Indication: HYPERTENSION
     Dosage: 80 MG TID PO
     Route: 048

REACTIONS (2)
  - DIALYSIS [None]
  - RENAL FAILURE ACUTE [None]
